FAERS Safety Report 12145416 (Version 1)
Quarter: 2016Q1

REPORT INFORMATION
  Report Type: Spontaneous
  Country: US (occurrence: None)
  Receive Date: 20160303
  Receipt Date: 20160303
  Transmission Date: 20160526
  Serious: Yes (Other)
  Sender: FDA-Public Use
  Company Number: None

PATIENT
  Age: 26 Year
  Sex: Female
  Weight: 83.01 kg

DRUGS (2)
  1. LEVOTHROID [Suspect]
     Active Substance: LEVOTHYROXINE SODIUM
     Route: 048
     Dates: start: 20160224, end: 20160226
  2. LEVOTHYROXINE 25MCG SANDOS [Suspect]
     Active Substance: LEVOTHYROXINE
     Indication: HYPOTHYROIDISM
     Route: 048
     Dates: start: 20160210, end: 20160211

REACTIONS (3)
  - Rash [None]
  - Product substitution issue [None]
  - Dermatitis allergic [None]

NARRATIVE: CASE EVENT DATE: 20160302
